FAERS Safety Report 10235613 (Version 1)
Quarter: 2014Q1

REPORT INFORMATION
  Report Type: Spontaneous
  Country: US (occurrence: None)
  Receive Date: 20140306
  Receipt Date: 20140306
  Transmission Date: 20141002
  Serious: Yes (Other)
  Sender: FDA-Public Use
  Company Number: 163-21880-13051478

PATIENT
  Age: 59 Year
  Sex: Female

DRUGS (8)
  1. REVLIMID [Suspect]
     Indication: PLASMA CELL MYELOMA
     Route: 048
     Dates: start: 20100914
  2. AMOXICILLIN-POTACLAVULANATE (CLAVULIN) (UNKNOWN) [Concomitant]
  3. AMBIEN (ZOLPIDEM TARTRATE) (UNNOWN) [Concomitant]
  4. AZITHROMYCIN (AZITHROMYCIN) (UNKNOWN) [Concomitant]
  5. DIAZEPAM (DIAZXEPAM) (UNKNOWN) [Concomitant]
  6. PAXIL CR (PAROXETINE HYDROCHLORIDE) (UNKNOWN) [Concomitant]
  7. VALTREX (VALACICLOVIR HYDROCHLORIDE) (UNKNOWN) [Concomitant]
  8. ZOMETA (ZOLEDRONIC ACID) (UNKNOWN) [Concomitant]

REACTIONS (2)
  - Upper respiratory tract infection [None]
  - Full blood count increased [None]
